FAERS Safety Report 6192175-1 (Version None)
Quarter: 2009Q2

REPORT INFORMATION
  Report Type: 
  Country: None (occurrence: None)
  Receive Date: 20090515
  Receipt Date: 20090508
  Transmission Date: 20091009
  Serious: Yes (Other)
  Sender: FDA-Public Use
  Company Number: ZA-B.I. PHARMACEUTICALS,INC./RIDGEFIELD-2008-BP-15352BP

PATIENT
  Age: 35 Year
  Sex: Female

DRUGS (2)
  1. VIRAMUNE [Suspect]
     Indication: HIV INFECTION
     Dosage: 200MG
     Route: 048
  2. TRUVADA [Suspect]
     Indication: HIV INFECTION
     Dosage: 500MG
     Route: 048

REACTIONS (2)
  - PLACENTA ACCRETA [None]
  - PLACENTA PRAEVIA [None]
